FAERS Safety Report 8623266-0 (Version None)
Quarter: 2012Q3

REPORT INFORMATION
  Report Type: 
  Country: None (occurrence: None)
  Receive Date: 20120827
  Receipt Date: 20120816
  Transmission Date: 20120928
  Serious: No
  Sender: FDA-Public Use
  Company Number: US-SANOFI-AVENTIS-2012SA002535

PATIENT
  Age: 78 Year
  Sex: Female
  Weight: 63.5 kg

DRUGS (5)
  1. ASCORBIC ACID [Concomitant]
  2. CITRACAL [Concomitant]
  3. VITAMIN E [Concomitant]
  4. NEBIVOLOL [Concomitant]
  5. LOVENOX [Suspect]
     Indication: PULMONARY EMBOLISM
     Route: 058
     Dates: start: 20111215, end: 20111218

REACTIONS (1)
  - INJECTION SITE PAIN [None]
